FAERS Safety Report 8354275-7 (Version None)
Quarter: 2012Q2

REPORT INFORMATION
  Report Type: 
  Country: None (occurrence: None)
  Receive Date: 20120511
  Receipt Date: 20120430
  Transmission Date: 20120825
  Serious: Yes (Disabling, Other)
  Sender: FDA-Public Use
  Company Number: DE-ROCHE-1048184

PATIENT
  Sex: Female
  Weight: 66 kg

DRUGS (6)
  1. AMLODIPINE [Concomitant]
     Indication: RENAL HYPERTENSION
     Route: 048
     Dates: start: 20100225
  2. RAMIPRIL [Concomitant]
     Indication: RENAL HYPERTENSION
     Route: 048
     Dates: start: 20100225
  3. CPS PULVER [Concomitant]
     Indication: HYPERKALAEMIA
     Route: 048
     Dates: start: 20100225
  4. MIRCERA [Suspect]
     Indication: NEPHROGENIC ANAEMIA
     Dosage: RECENT DOSE ON 12/MAR/2012
     Route: 042
     Dates: start: 20100322
  5. ALFACALCIDOL [Concomitant]
     Indication: HYPERPARATHYROIDISM SECONDARY
     Route: 048
     Dates: start: 20100225
  6. TORSEMIDE [Concomitant]
     Indication: POLYURIA
     Route: 048
     Dates: start: 20100225

REACTIONS (1)
  - SMALL CELL LUNG CANCER STAGE UNSPECIFIED [None]
